FAERS Safety Report 17956016 (Version 4)
Quarter: 2020Q3

REPORT INFORMATION
  Report Type: Spontaneous
  Country: US (occurrence: US)
  Receive Date: 20200629
  Receipt Date: 20200713
  Transmission Date: 20201103
  Serious: No
  Sender: FDA-Public Use
  Company Number: US-PFIZER INC-2020246941

PATIENT
  Age: 61 Year
  Sex: Female
  Weight: 92.99 kg

DRUGS (2)
  1. IBRANCE [Suspect]
     Active Substance: PALBOCICLIB
     Indication: BREAST CANCER METASTATIC
     Dosage: 125 MG, CYCLIC (125 MG ONCE DAILY BY MOUTH. FOR 21 DAYS AND THEN OFF 7 DAYS)
     Route: 048
     Dates: start: 202006
  2. IBRANCE [Suspect]
     Active Substance: PALBOCICLIB
     Dosage: UNK (SHE TAKES A HANDFUL IN THE MORNING, AT LUNCH AND AGAIN IN THE EVENING)

REACTIONS (2)
  - Neoplasm progression [Not Recovered/Not Resolved]
  - Gastrointestinal pain [Unknown]

NARRATIVE: CASE EVENT DATE: 2020
